FAERS Safety Report 25265648 (Version 1)
Quarter: 2025Q2

REPORT INFORMATION
  Report Type: Spontaneous
  Country: SE (occurrence: SE)
  Receive Date: 20250503
  Receipt Date: 20250503
  Transmission Date: 20250716
  Serious: Yes (Death)
  Sender: AUROBINDO
  Company Number: SE-LUNDBECK-DKLU3066516

PATIENT
  Age: 40 Year
  Sex: Female

DRUGS (8)
  1. ZOLPIDEM [Suspect]
     Active Substance: ZOLPIDEM TARTRATE
     Indication: Product used for unknown indication
     Route: 065
  2. TRIMEPRAZINE [Suspect]
     Active Substance: TRIMEPRAZINE
     Indication: Product used for unknown indication
     Route: 065
  3. ATOMOXETINE [Suspect]
     Active Substance: ATOMOXETINE
     Indication: Product used for unknown indication
     Route: 065
  4. DIAZEPAM [Suspect]
     Active Substance: DIAZEPAM
     Indication: Product used for unknown indication
     Route: 065
  5. FENTANYL [Suspect]
     Active Substance: FENTANYL
     Indication: Product used for unknown indication
     Route: 065
  6. NORDAZEPAM [Suspect]
     Active Substance: NORDAZEPAM
     Indication: Product used for unknown indication
     Route: 065
  7. OXAZEPAM [Suspect]
     Active Substance: OXAZEPAM
     Indication: Product used for unknown indication
     Route: 065
  8. VORTIOXETINE [Suspect]
     Active Substance: VORTIOXETINE
     Indication: Product used for unknown indication
     Route: 065

REACTIONS (1)
  - Toxicity to various agents [Fatal]
